FAERS Safety Report 23619671 (Version 2)
Quarter: 2024Q2

REPORT INFORMATION
  Report Type: Spontaneous
  Country: US (occurrence: US)
  Receive Date: 20240312
  Receipt Date: 20240401
  Transmission Date: 20240716
  Serious: No
  Sender: FDA-Public Use
  Company Number: US-AMGEN-USASP2024046935

PATIENT
  Age: 33 Year
  Sex: Female
  Weight: 132 kg

DRUGS (2)
  1. NEULASTA [Suspect]
     Active Substance: PEGFILGRASTIM
     Indication: Breast cancer
     Dosage: UNK
     Route: 065
  2. NEULASTA [Suspect]
     Active Substance: PEGFILGRASTIM
     Indication: Neutropenia

REACTIONS (2)
  - Device adhesion issue [Unknown]
  - Device placement issue [Unknown]

NARRATIVE: CASE EVENT DATE: 20240305
